FAERS Safety Report 24748278 (Version 1)
Quarter: 2024Q4

REPORT INFORMATION
  Report Type: Report from Study
  Country: IT (occurrence: IT)
  Receive Date: 20241218
  Receipt Date: 20241218
  Transmission Date: 20250114
  Serious: Yes (Other)
  Sender: JOHNSON AND JOHNSON
  Company Number: IT-JNJFOC-20241247109

PATIENT
  Age: 77 Year
  Sex: Female

DRUGS (3)
  1. DARZALEX [Suspect]
     Active Substance: DARATUMUMAB
     Indication: Plasma cell myeloma
     Dosage: 15.0
     Route: 065
     Dates: start: 20241002, end: 20241002
  2. DARZALEX [Suspect]
     Active Substance: DARATUMUMAB
     Dosage: 15.0
     Route: 065
     Dates: start: 20241009, end: 20241009
  3. DARZALEX [Suspect]
     Active Substance: DARATUMUMAB
     Dosage: 15.0
     Route: 065
     Dates: start: 20241016, end: 20241016

REACTIONS (1)
  - Leukopenia [Recovering/Resolving]

NARRATIVE: CASE EVENT DATE: 20241016
